FAERS Safety Report 4511798-6 (Version None)
Quarter: 2004Q4

REPORT INFORMATION
  Report Type: 
  Country: None (occurrence: None)
  Receive Date: 20041123
  Receipt Date: 20041123
  Transmission Date: 20050328
  Serious: Yes (Other)
  Sender: FDA-Public Use
  Company Number: None

PATIENT
  Age: 55 Year
  Sex: Male
  Weight: 69.4 kg

DRUGS (12)
  1. GABAPENTIN [Suspect]
  2. FOSINOPRIL NA [Concomitant]
  3. MELOXICAM [Concomitant]
  4. ACETAMINOPHEN [Concomitant]
  5. CLOTRIMAZOLE 1% [Concomitant]
  6. CYCLOBENZAPRINE HCL [Concomitant]
  7. OMEPRAZOLE [Concomitant]
  8. DIAZEPAM [Concomitant]
  9. IRBESARTAN [Concomitant]
  10. DILTIAZEM [Concomitant]
  11. GABAPENTIN [Concomitant]
  12. PAROXETINE HCL [Concomitant]

REACTIONS (1)
  - VISION BLURRED [None]
